FAERS Safety Report 8189758-6 (Version None)
Quarter: 2012Q1

REPORT INFORMATION
  Report Type: 
  Country: None (occurrence: None)
  Receive Date: 20120307
  Receipt Date: 20120228
  Transmission Date: 20120608
  Serious: Yes (Hospitalization, Other)
  Sender: FDA-Public Use
  Company Number: US-BAYER-2011-078113

PATIENT
  Age: 25 Year
  Sex: Female
  Weight: 86.168 kg

DRUGS (8)
  1. AMITRIPTYLINE HCL [Concomitant]
     Dosage: 25 MG, UNK
     Route: 048
     Dates: start: 20080721
  2. SKELAXIN [Concomitant]
     Dosage: UNK
     Route: 048
     Dates: start: 20080721
  3. ALTERNATE TYLENOL [Concomitant]
     Indication: PAIN
     Dosage: UNK
     Route: 048
     Dates: start: 20080826
  4. DROSPIRENONE AND ETHINYL ESTRADIOL [Suspect]
     Dosage: UNK
  5. YASMIN [Suspect]
     Dosage: UNK
     Dates: start: 20080701, end: 20090921
  6. CELEBREX [Concomitant]
     Dosage: 200 MG, QD
     Route: 048
     Dates: start: 20080826
  7. IBUPROFEN [Concomitant]
     Indication: PAIN
     Dosage: UNK
     Dates: start: 20080826
  8. LEVOXYL [Concomitant]
     Indication: HYPERTHYROIDISM
     Dosage: 100 MCG/24HR, UNK
     Route: 048
     Dates: start: 20080826

REACTIONS (4)
  - EMOTIONAL DISTRESS [None]
  - BILIARY DYSKINESIA [None]
  - GALLBLADDER DISORDER [None]
  - CHOLECYSTITIS [None]
